FAERS Safety Report 25204778 (Version 1)
Quarter: 2025Q2

REPORT INFORMATION
  Report Type: Spontaneous
  Country: CN (occurrence: CN)
  Receive Date: 20250416
  Receipt Date: 20250416
  Transmission Date: 20250716
  Serious: Yes (Hospitalization)
  Sender: ROCHE
  Company Number: CN-ROCHE-10000252294

PATIENT
  Age: 5 Year
  Sex: Male

DRUGS (4)
  1. BEVACIZUMAB [Suspect]
     Active Substance: BEVACIZUMAB
     Indication: Gliomatosis cerebri
     Route: 042
     Dates: start: 20250308, end: 20250308
  2. ETOPOSIDE [Suspect]
     Active Substance: ETOPOSIDE
     Indication: Gliomatosis cerebri
     Route: 042
     Dates: start: 20250308, end: 20250310
  3. CARBOPLATIN [Suspect]
     Active Substance: CARBOPLATIN
     Indication: Gliomatosis cerebri
     Route: 042
     Dates: start: 20250308, end: 20250308
  4. VINCRISTINE SULFATE [Suspect]
     Active Substance: VINCRISTINE SULFATE
     Indication: Gliomatosis cerebri
     Route: 042
     Dates: start: 20250308, end: 20250308

REACTIONS (4)
  - Myelosuppression [Recovering/Resolving]
  - Neutrophil count decreased [Recovering/Resolving]
  - Febrile neutropenia [Recovering/Resolving]
  - White blood cell count decreased [Recovering/Resolving]

NARRATIVE: CASE EVENT DATE: 20250322
